FAERS Safety Report 6393183-8 (Version None)
Quarter: 2009Q4

REPORT INFORMATION
  Report Type: 
  Country: None (occurrence: None)
  Receive Date: 20091008
  Receipt Date: 20091001
  Transmission Date: 20100525
  Serious: Yes (Other)
  Sender: FDA-Public Use
  Company Number: US-BRISTOL-MYERS SQUIBB COMPANY-14748701

PATIENT
  Age: 48 Year
  Sex: Female

DRUGS (4)
  1. ABILIFY [Suspect]
     Indication: BIPOLAR DISORDER
     Dosage: ARIPIPRAZOLE WAS WITHDRAWN
     Dates: end: 20080819
  2. BENADRYL [Concomitant]
  3. CITALOPRAM HYDROBROMIDE [Concomitant]
  4. AUGMENTIN [Concomitant]

REACTIONS (3)
  - HYPOKALAEMIA [None]
  - TORSADE DE POINTES [None]
  - VENTRICULAR TACHYCARDIA [None]
